FAERS Safety Report 10402029 (Version 1)
Quarter: 2014Q3

REPORT INFORMATION
  Report Type: Spontaneous
  Country: US (occurrence: None)
  Receive Date: 20140820
  Receipt Date: 20140820
  Transmission Date: 20150326
  Serious: No
  Sender: FDA-Public Use
  Company Number: None

PATIENT
  Age: 73 Year
  Sex: Male

DRUGS (18)
  1. WARFARIN (COUMADIN) [Concomitant]
  2. ASPIRIN  (ASPIRIN) [Concomitant]
     Active Substance: ASPIRIN
  3. CHOLECALCIFEROL (CHOLECALCIFEROL) [Concomitant]
  4. PAROXETINE (PAXIL) [Concomitant]
  5. INSULIN LISPRO (HUMALOG) [Concomitant]
  6. PSYLLIUM (METAMUCIL) [Concomitant]
  7. VICTOZA [Suspect]
     Active Substance: LIRAGLUTIDE
     Indication: TYPE 2 DIABETES MELLITUS
     Route: 058
  8. LOVENOX [Concomitant]
     Active Substance: ENOXAPARIN SODIUM
  9. EZETIMIBE-SIMVASTATIN (VYTORIN) [Concomitant]
  10. FELODIPINE (PLENDIL) [Concomitant]
  11. FERROUS SULFATE [Concomitant]
     Active Substance: FERROUS SULFATE\FERROUS SULFATE, DRIED
  12. HYDROCHLOROTHIAZIDE-IRBESARTAN (AVALIDE) [Concomitant]
  13. CYANOCOBALAMIN. [Concomitant]
     Active Substance: CYANOCOBALAMIN
  14. NEBIVOLOL (BYSTOLIC) [Concomitant]
  15. OXYCODONE (OXYCODONE) [Concomitant]
     Active Substance: OXYCODONE
  16. LOPERAMIDE (LOPERAMIDE) [Concomitant]
     Active Substance: LOPERAMIDE
  17. OMEPRAZOLE (OMEPRAZOLE) [Concomitant]
     Active Substance: OMEPRAZOLE
  18. LANTUS [Concomitant]
     Active Substance: INSULIN GLARGINE

REACTIONS (2)
  - Pancreatic mass [None]
  - Neuroendocrine tumour [None]

NARRATIVE: CASE EVENT DATE: 20140506
